FAERS Safety Report 11224426 (Version 2)
Quarter: 2015Q3

REPORT INFORMATION
  Report Type: Spontaneous
  Country: US (occurrence: US)
  Receive Date: 20150629
  Receipt Date: 20150807
  Transmission Date: 20151125
  Serious: Yes (Hospitalization, Other)
  Sender: FDA-Public Use
  Company Number: US-AMGEN-USASP2015062603

PATIENT
  Age: 74 Year
  Sex: Female

DRUGS (5)
  1. REMICADE [Suspect]
     Active Substance: INFLIXIMAB
     Indication: PRODUCT USED FOR UNKNOWN INDICATION
     Dosage: UNK
     Route: 065
  2. ZOLOFT [Concomitant]
     Active Substance: SERTRALINE HYDROCHLORIDE
     Dosage: DAILY
  3. CELEBREX [Concomitant]
     Active Substance: CELECOXIB
     Dosage: DAILY
  4. ENBREL [Suspect]
     Active Substance: ETANERCEPT
     Indication: RHEUMATOID ARTHRITIS
     Dosage: 50 MG, QWK
     Route: 065
  5. FOLIC ACID. [Concomitant]
     Active Substance: FOLIC ACID
     Dosage: DAILY

REACTIONS (12)
  - Arthritis [Recovered/Resolved]
  - Surgery [Unknown]
  - Rib fracture [Recovered/Resolved]
  - Hypokinesia [Recovered/Resolved]
  - Drug dose omission [Unknown]
  - Crepitations [Recovered/Resolved]
  - Fatigue [Recovered/Resolved]
  - Pain [Unknown]
  - Fall [Recovered/Resolved]
  - Lethargy [Recovered/Resolved]
  - Hypoaesthesia [Unknown]
  - Adverse drug reaction [Unknown]

NARRATIVE: CASE EVENT DATE: 2015
